FAERS Safety Report 10949813 (Version 1)
Quarter: 2015Q1

REPORT INFORMATION
  Report Type: Spontaneous
  Country: CN (occurrence: CN)
  Receive Date: 20150324
  Receipt Date: 20150324
  Transmission Date: 20150721
  Serious: Yes (Life-Threatening, Other)
  Sender: FDA-Public Use
  Company Number: CN-BAUSCH-BL-2015-009443

PATIENT
  Age: 57 Year
  Sex: Male

DRUGS (1)
  1. ALL-TRANS RETINOIC ACID (NOS) [Suspect]
     Active Substance: TRETINOIN
     Indication: ACUTE PROMYELOCYTIC LEUKAEMIA
     Route: 048

REACTIONS (10)
  - Atrioventricular block complete [Recovered/Resolved]
  - Seizure [Unknown]
  - Bone pain [Unknown]
  - Delirium [Unknown]
  - Cardiac arrest [Unknown]
  - Headache [Unknown]
  - Mucosal inflammation [Unknown]
  - Loss of consciousness [Unknown]
  - Aphasia [Unknown]
  - Paresis [Unknown]
